FAERS Safety Report 6155372-7 (Version None)
Quarter: 2009Q2

REPORT INFORMATION
  Report Type: 
  Country: None (occurrence: None)
  Receive Date: 20090415
  Receipt Date: 20090409
  Transmission Date: 20091009
  Serious: Yes (Other)
  Sender: FDA-Public Use
  Company Number: US-B.I. PHARMACEUTICALS,INC./RIDGEFIELD-2009-BP-04504BP

PATIENT
  Sex: Male

DRUGS (2)
  1. DULCOLAX [Suspect]
     Indication: BOWEL PREPARATION
     Dosage: 20MG
     Route: 048
     Dates: start: 20090408
  2. DULCOLAX [Suspect]
     Dosage: 40MG
     Route: 048
     Dates: start: 20090409

REACTIONS (1)
  - RECTAL HAEMORRHAGE [None]
